FAERS Safety Report 9241426 (Version 1)
Quarter: 2013Q2

REPORT INFORMATION
  Report Type: Spontaneous
  Country: US (occurrence: US)
  Receive Date: 20130419
  Receipt Date: 20130419
  Transmission Date: 20140414
  Serious: Yes (Hospitalization)
  Sender: FDA-Public Use
  Company Number: US-AMGEN-USASP2013026808

PATIENT
  Age: 62 Year
  Sex: Male

DRUGS (1)
  1. ENBREL [Suspect]
     Indication: PSORIATIC ARTHROPATHY
     Dosage: 50 MG, TWICE A WEEK
     Dates: start: 20100524, end: 201111

REACTIONS (3)
  - Skin lesion [Recovered/Resolved]
  - Abscess limb [Recovered/Resolved]
  - Herpes zoster [Recovered/Resolved]
